FAERS Safety Report 10066914 (Version 1)
Quarter: 2014Q2

REPORT INFORMATION
  Report Type: Spontaneous
  Country: US (occurrence: US)
  Receive Date: 20140409
  Receipt Date: 20140409
  Transmission Date: 20141212
  Serious: No
  Sender: FDA-Public Use
  Company Number: US-009507513-1403USA013817

PATIENT
  Sex: Female

DRUGS (6)
  1. VICTRELIS [Suspect]
     Indication: HEPATITIS C
     Dosage: UNK
     Route: 048
     Dates: start: 2012
  2. REBETOL [Suspect]
     Indication: HEPATITIS C
     Dosage: UNK
     Route: 048
     Dates: start: 2012
  3. INTERFERON (UNSPECIFIED) [Suspect]
     Indication: HEPATITIS C
  4. LEVOTHYROXINE SODIUM [Concomitant]
  5. ESTRADIOL [Concomitant]
  6. CELEXA [Concomitant]

REACTIONS (3)
  - Anaemia [Recovered/Resolved]
  - Confusional state [Recovered/Resolved]
  - No therapeutic response [Unknown]
